FAERS Safety Report 4350816-5 (Version None)
Quarter: 2004Q2

REPORT INFORMATION
  Report Type: 
  Country: None (occurrence: None)
  Receive Date: 20040427
  Receipt Date: 20040414
  Transmission Date: 20050107
  Serious: Yes (Hospitalization)
  Sender: FDA-Public Use
  Company Number: 2004025652

PATIENT
  Age: 17 Year
  Sex: Female

DRUGS (2)
  1. ZIPRASIDONE [Suspect]
     Indication: SCHIZOPHRENIA
     Dosage: 40 MG (BID), ORAL
     Route: 048
  2. ETHANOL (ETHANOL) [Suspect]
     Indication: ILL-DEFINED DISORDER

REACTIONS (1)
  - ALCOHOL POISONING [None]
